FAERS Safety Report 24888914 (Version 1)
Quarter: 2025Q1

REPORT INFORMATION
  Report Type: Spontaneous
  Country: GB (occurrence: GB)
  Receive Date: 20250127
  Receipt Date: 20250127
  Transmission Date: 20250409
  Serious: Yes (Other)
  Sender: MERCK
  Company Number: GB-009507513-2501GBR005819

PATIENT
  Sex: Female

DRUGS (1)
  1. ZEPATIER [Suspect]
     Active Substance: ELBASVIR\GRAZOPREVIR
     Route: 048
     Dates: start: 20241214, end: 20250102

REACTIONS (15)
  - Syncope [Unknown]
  - Fatigue [Unknown]
  - Dyspnoea [Unknown]
  - Confusional state [Unknown]
  - Malaise [Unknown]
  - Dizziness [Unknown]
  - Pruritus [Unknown]
  - Pyrexia [Unknown]
  - Night sweats [Unknown]
  - Headache [Unknown]
  - Alopecia [Unknown]
  - Sleep disorder [Unknown]
  - Disturbance in attention [Unknown]
  - Gait disturbance [Unknown]
  - Hair disorder [Unknown]

NARRATIVE: CASE EVENT DATE: 20241201
